FAERS Safety Report 7233484-4 (Version None)
Quarter: 2011Q1

REPORT INFORMATION
  Report Type: 
  Country: None (occurrence: None)
  Receive Date: 20110119
  Receipt Date: 20110111
  Transmission Date: 20110831
  Serious: Yes (Other)
  Sender: FDA-Public Use
  Company Number: CHPA2011US00886

PATIENT
  Age: 52 Year
  Sex: Male
  Weight: 95.238 kg

DRUGS (9)
  1. ZOLAM [Interacting]
     Dosage: UNK, UNK
     Route: 048
  2. PHENYTOIN [Interacting]
     Dosage: UNK, UNK
     Route: 048
  3. BENEFIBER W/ WHEAT DEXTRIN [Interacting]
     Dosage: 2 TSP, BID
     Route: 048
     Dates: start: 20100101, end: 20100101
  4. PHENOBARBITAL [Interacting]
     Indication: GRAND MAL CONVULSION
     Dosage: UNK, UNK
     Route: 048
  5. PHENYTOIN [Interacting]
     Indication: GRAND MAL CONVULSION
     Dosage: UNK, UNK (^TOOK MORE TO PREVENT SEIZURE^)
     Route: 048
     Dates: start: 20110101
  6. PHENYTOIN [Interacting]
     Dosage: UNK, UNK (^TOOK MORE TO PREVENT SEIZURE^)
     Route: 048
     Dates: start: 20100101
  7. VICODIN [Concomitant]
  8. BENEFIBER W/ WHEAT DEXTRIN [Suspect]
     Indication: CONSTIPATION
     Dosage: 2 TSP, BID
     Route: 048
     Dates: start: 20110106, end: 20110110
  9. CITALOPRAM [Interacting]
     Indication: GRAND MAL CONVULSION
     Dosage: UNK, UNK
     Route: 048

REACTIONS (9)
  - LETHARGY [None]
  - SOMNOLENCE [None]
  - ASTHENIA [None]
  - DEPRESSED LEVEL OF CONSCIOUSNESS [None]
  - DIZZINESS [None]
  - AURA [None]
  - CONFUSIONAL STATE [None]
  - INHIBITORY DRUG INTERACTION [None]
  - OFF LABEL USE [None]
